FAERS Safety Report 8220321-4 (Version None)
Quarter: 2012Q1

REPORT INFORMATION
  Report Type: 
  Country: None (occurrence: None)
  Receive Date: 20120320
  Receipt Date: 20120313
  Transmission Date: 20120608
  Serious: Yes (Other)
  Sender: FDA-Public Use
  Company Number: US-SHIRE-ALL1-2012-01412

PATIENT
  Sex: Female
  Weight: 22.222 kg

DRUGS (2)
  1. ADDERALL 5 [Suspect]
     Indication: PRODUCT USED FOR UNKNOWN INDICATION
     Dosage: 20 MG, 1X/DAY:QD
     Route: 064
     Dates: start: 20060101, end: 20070502
  2. ADDERALL XR 10 [Suspect]
     Indication: PRODUCT USED FOR UNKNOWN INDICATION
     Dosage: 20 MG, 1X/DAY:QD
     Route: 064
     Dates: start: 20060101, end: 20070502

REACTIONS (10)
  - FOREIGN BODY [None]
  - NERVOUS SYSTEM DISORDER [None]
  - JUDGEMENT IMPAIRED [None]
  - AGGRESSION [None]
  - EROSIVE OESOPHAGITIS [None]
  - OPPOSITIONAL DEFIANT DISORDER [None]
  - DISTURBANCE IN SOCIAL BEHAVIOUR [None]
  - ATTENTION DEFICIT/HYPERACTIVITY DISORDER [None]
  - FOETAL EXPOSURE DURING PREGNANCY [None]
  - OESOPHAGEAL STENOSIS [None]
